FAERS Safety Report 19280471 (Version 1)
Quarter: 2021Q2

REPORT INFORMATION
  Report Type: Report from Study
  Country: None (occurrence: US)
  Receive Date: 20210521
  Receipt Date: 20210521
  Transmission Date: 20210717
  Serious: Yes (Other)
  Sender: FDA-Public Use
  Company Number: US-ABBVIE-21K-163-3908949-00

PATIENT
  Sex: Male

DRUGS (1)
  1. HUMIRA [Suspect]
     Active Substance: ADALIMUMAB
     Indication: CROHN^S DISEASE
     Route: 058
     Dates: start: 2010

REACTIONS (6)
  - Blood loss anaemia [Unknown]
  - Underdose [Not Recovered/Not Resolved]
  - Visual impairment [Not Recovered/Not Resolved]
  - Device issue [Unknown]
  - Injection site haemorrhage [Recovered/Resolved]
  - Hypoacusis [Not Recovered/Not Resolved]
